FAERS Safety Report 4586589-0 (Version None)
Quarter: 2005Q1

REPORT INFORMATION
  Report Type: 
  Country: None (occurrence: None)
  Receive Date: 20050218
  Receipt Date: 20040511
  Transmission Date: 20050727
  Serious: No
  Sender: FDA-Public Use
  Company Number: US-BRISTOL-MYERS SQUIBB COMPANY-12586996

PATIENT
  Sex: Female

DRUGS (7)
  1. CARBOPLATIN [Suspect]
     Dosage: RECHALLENGED: 04-DEC-2003
     Route: 042
     Dates: start: 20031111, end: 20031111
  2. TAXOL [Suspect]
     Dates: start: 20031111, end: 20031111
  3. BENADRYL [Concomitant]
     Indication: PREMEDICATION
     Dates: start: 20031111, end: 20031204
  4. CIMETIDINE [Concomitant]
     Indication: PREMEDICATION
     Dates: start: 20031111, end: 20031111
  5. DECADRON [Concomitant]
     Indication: PREMEDICATION
     Dates: start: 20031111, end: 20031111
  6. ZOFRAN [Concomitant]
     Indication: PREMEDICATION
     Dates: start: 20031111, end: 20031204
  7. SOLU-CORTEF [Concomitant]
     Indication: PREMEDICATION
     Dates: start: 20031204, end: 20031204

REACTIONS (4)
  - DEFAECATION URGENCY [None]
  - ERYTHEMA [None]
  - FLUSHING [None]
  - PRURITUS [None]
